FAERS Safety Report 7489012-1 (Version None)
Quarter: 2011Q1

REPORT INFORMATION
  Report Type: 
  Country: None (occurrence: None)
  Receive Date: 20110316
  Receipt Date: 20090310
  Transmission Date: 20110831
  Serious: Yes (Hospitalization)
  Sender: FDA-Public Use
  Company Number: 200914754

PATIENT
  Sex: Male
  Weight: 179.6244 kg

DRUGS (11)
  1. NEURONTIN [Concomitant]
  2. BENADRYL [Concomitant]
  3. HUMATE P (ANTIHEMOPHILIC FACTOR (HUMAN) VWF DRIED PASTEURIZED CSL BEHR [Suspect]
     Indication: VON WILLEBRAND'S DISEASE
     Dosage: SEE IMAGE
     Route: 042
     Dates: start: 20090310, end: 20090310
  4. HUMATE P (ANTIHEMOPHILIC FACTOR (HUMAN) VWF DRIED PASTEURIZED CSL BEHR [Suspect]
     Indication: VON WILLEBRAND'S DISEASE
     Dosage: SEE IMAGE
     Route: 042
     Dates: start: 20090310, end: 20090310
  5. HUMATE P (ANTIHEMOPHILIC FACTOR (HUMAN) VWF DRIED PASTEURIZED CSL BEHR [Suspect]
     Indication: VON WILLEBRAND'S DISEASE
     Dosage: SEE IMAGE
     Route: 042
     Dates: start: 20090311, end: 20090311
  6. RANITIDINE HYDROCHLORIDE [Concomitant]
  7. DEMEROL [Concomitant]
  8. COREG [Concomitant]
  9. HUMATE P (ANTIHEMOPHILIC FACTOR (HUMAN) VWF, DREID PASTEURIZED CSL BEH [Suspect]
  10. AMICAR [Concomitant]
  11. MULTIVITAMIN [Concomitant]

REACTIONS (4)
  - LETHARGY [None]
  - OXYGEN SATURATION DECREASED [None]
  - THROAT TIGHTNESS [None]
  - PARAESTHESIA [None]
